FAERS Safety Report 5896798-6 (Version None)
Quarter: 2008Q3

REPORT INFORMATION
  Report Type: 
  Country: None (occurrence: None)
  Receive Date: 20080924
  Receipt Date: 20080211
  Transmission Date: 20090109
  Serious: Yes (Other)
  Sender: FDA-Public Use
  Company Number: US-ASTRAZENECA-2007UW27510

PATIENT
  Age: 17431 Day
  Sex: Female

DRUGS (6)
  1. SEROQUEL [Suspect]
     Indication: PARANOIA
     Route: 048
     Dates: start: 20020515, end: 20070419
  2. SEROQUEL [Suspect]
     Indication: THINKING ABNORMAL
     Route: 048
     Dates: start: 20020515, end: 20070419
  3. SEROQUEL [Suspect]
     Route: 048
     Dates: start: 20020515, end: 20070419
  4. RISPERDAL [Suspect]
     Indication: PARANOIA
     Dates: start: 19980101, end: 20010101
  5. RISPERDAL [Suspect]
     Indication: THINKING ABNORMAL
     Dates: start: 19980101, end: 20010101
  6. RISPERDAL [Suspect]
     Dates: start: 19980101, end: 20010101

REACTIONS (2)
  - DIABETES MELLITUS [None]
  - DIABETIC KETOACIDOSIS [None]
